FAERS Safety Report 13395132 (Version 1)
Quarter: 2017Q2

REPORT INFORMATION
  Report Type: Spontaneous
  Country: US (occurrence: US)
  Receive Date: 20170403
  Receipt Date: 20170403
  Transmission Date: 20170830
  Serious: Yes (Hospitalization)
  Sender: FDA-Public Use
  Company Number: US-STRIDES ARCOLAB LIMITED-2016SP016697

PATIENT

DRUGS (2)
  1. IBUPROFEN. [Suspect]
     Active Substance: IBUPROFEN
     Indication: TOOTHACHE
     Dosage: 200 MG TABLETS, EVERY FEW HOURS
     Route: 048
  2. IBUPROFEN. [Suspect]
     Active Substance: IBUPROFEN
     Dosage: 200 MG CRUSHED TABLETS, EVERY FEW HOURS
     Route: 061

REACTIONS (5)
  - Oral mucosal exfoliation [Recovered/Resolved]
  - Drug effect incomplete [Unknown]
  - Oral disorder [Recovered/Resolved]
  - Chemical burn of gastrointestinal tract [Recovered/Resolved]
  - Mucosal erosion [Recovered/Resolved]
